FAERS Safety Report 19085898 (Version 1)
Quarter: 2021Q2

REPORT INFORMATION
  Report Type: Spontaneous
  Country: IN (occurrence: IN)
  Receive Date: 20210402
  Receipt Date: 20210402
  Transmission Date: 20210717
  Serious: No
  Sender: FDA-Public Use
  Company Number: IN-LUPIN LIMITED-2021-04033

PATIENT
  Age: 37 Year
  Sex: Female

DRUGS (11)
  1. PROGESTERONE. [Suspect]
     Active Substance: PROGESTERONE
     Indication: PRODUCT USED FOR UNKNOWN INDICATION
     Dosage: UNK
     Route: 065
  2. BUPIVACAINE. [Suspect]
     Active Substance: BUPIVACAINE
     Indication: SPINAL ANAESTHESIA
     Dosage: 7.5 MILLIGRAM (7.5 MG OF 0.5% BUPIVACAINE IN GLUCOSE)
     Route: 065
  3. IRON [Suspect]
     Active Substance: IRON
     Indication: PRODUCT USED FOR UNKNOWN INDICATION
     Dosage: UNK
     Route: 065
  4. OCTREOTIDE. [Suspect]
     Active Substance: OCTREOTIDE
     Indication: HYPOGLYCAEMIA
     Dosage: UNK
     Route: 065
  5. FOLATE [Suspect]
     Active Substance: FOLATE SODIUM
     Indication: PRODUCT USED FOR UNKNOWN INDICATION
     Dosage: UNK
     Route: 065
  6. FENTANYL. [Suspect]
     Active Substance: FENTANYL
     Indication: SPINAL ANAESTHESIA
     Dosage: 25 MICROGRAM
     Route: 065
  7. DEXTROSE. [Suspect]
     Active Substance: DEXTROSE
     Indication: VEHICLE SOLUTION USE
     Dosage: UNK (0.5% BUPIVACAINE IN GLUCOSE)
     Route: 065
  8. CINACALCET. [Suspect]
     Active Substance: CINACALCET
     Indication: HYPERCALCAEMIA
     Dosage: 30 MILLIGRAM
     Route: 065
  9. LABETALOL [Suspect]
     Active Substance: LABETALOL\LABETALOL HYDROCHLORIDE
     Indication: HYPERTENSION
     Dosage: 100 MILLIGRAM
     Route: 065
  10. DEXTROSE. [Suspect]
     Active Substance: DEXTROSE
     Indication: HYPOGLYCAEMIA
     Dosage: UNK (IN TITRATED DOSES (ROUTE: INFUSION))
  11. ABSOLUTE ALCOHOL [Suspect]
     Active Substance: ALCOHOL
     Indication: PARATHYROID TUMOUR BENIGN
     Dosage: 2 MILLILITER
     Route: 065

REACTIONS (2)
  - Normal newborn [Unknown]
  - Exposure during pregnancy [Unknown]
